FAERS Safety Report 8538070-1 (Version None)
Quarter: 2012Q3

REPORT INFORMATION
  Report Type: 
  Country: None (occurrence: None)
  Receive Date: 20120725
  Receipt Date: 20120711
  Transmission Date: 20120928
  Serious: Yes (Hospitalization)
  Sender: FDA-Public Use
  Company Number: GB-PFIZER INC-2010176195

PATIENT
  Age: 80 Year
  Sex: Female

DRUGS (12)
  1. CARAFATE [Concomitant]
  2. TRAMADOL [Concomitant]
  3. PREGABALIN [Concomitant]
  4. METOCLOPRAMIDE [Concomitant]
  5. TYLENOL [Concomitant]
  6. OMEPRAZOLE [Concomitant]
  7. SUNITINIB MALATE [Suspect]
     Indication: METASTATIC RENAL CELL CARCINOMA
     Dosage: 50 MG, 1X/DAY
     Route: 048
     Dates: start: 20100220, end: 20101023
  8. BISOPROLOL [Concomitant]
  9. CO-DYDRAMOL [Concomitant]
  10. COD-LIVER OIL [Concomitant]
  11. AQUEOUS CREAM [Concomitant]
  12. LEVOTHYROXINE SODIUM [Concomitant]

REACTIONS (1)
  - ANGIODYSPLASIA [None]
